FAERS Safety Report 12862920 (Version 12)
Quarter: 2018Q2

REPORT INFORMATION
  Report Type: Report from Study
  Country: PA (occurrence: PA)
  Receive Date: 20161019
  Receipt Date: 20180615
  Transmission Date: 20180711
  Serious: Yes (Other)
  Sender: FDA-Public Use
  Company Number: PHHY2016PA044048

PATIENT
  Age: 64 Year
  Sex: Female

DRUGS (6)
  1. AFINITOR [Suspect]
     Active Substance: EVEROLIMUS
     Indication: METASTASES TO BONE
     Dosage: 10 MG, QD
     Route: 065
     Dates: start: 20171212
  2. ENALAPRIL [Concomitant]
     Active Substance: ENALAPRIL
     Indication: PRODUCT USED FOR UNKNOWN INDICATION
     Dosage: 5 MG, QD
     Route: 048
  3. AFINITOR [Suspect]
     Active Substance: EVEROLIMUS
     Indication: BREAST CANCER
     Dosage: 5 MG, UNK
     Route: 065
     Dates: end: 201609
  4. ZOMETA [Suspect]
     Active Substance: ZOLEDRONIC ACID
     Indication: PRODUCT USED FOR UNKNOWN INDICATION
     Dosage: EVERY 6 MONTHS
     Route: 065
  5. AFINITOR [Suspect]
     Active Substance: EVEROLIMUS
     Dosage: 5 MG, UNK
     Route: 065
     Dates: end: 20180201
  6. ORAL B (SODIUM BITARTRATE\SODIUM PERBORATE) [Suspect]
     Active Substance: SODIUM BITARTRATE\SODIUM PERBORATE
     Indication: PRODUCT USED FOR UNKNOWN INDICATION
     Route: 065

REACTIONS (68)
  - Metastases to lung [Unknown]
  - Cyst [Unknown]
  - Rhinalgia [Unknown]
  - Saliva altered [Unknown]
  - Glossodynia [Unknown]
  - Weight decreased [Unknown]
  - Arthralgia [Unknown]
  - Fatigue [Unknown]
  - Dyspnoea [Recovered/Resolved]
  - Hepatic lesion [Unknown]
  - Central nervous system lesion [Unknown]
  - Vasodilatation [Unknown]
  - Anal pruritus [Unknown]
  - Dysgeusia [Unknown]
  - Tooth abscess [Unknown]
  - Blood cholesterol increased [Unknown]
  - Oral disorder [Unknown]
  - Nasal dryness [Unknown]
  - Oedema genital [Recovered/Resolved]
  - Dysuria [Unknown]
  - Feeling abnormal [Unknown]
  - Impaired healing [Unknown]
  - Somnolence [Unknown]
  - Pruritus [Not Recovered/Not Resolved]
  - Arthralgia [None]
  - Swelling face [Unknown]
  - Metastasis [Unknown]
  - Muscle swelling [Unknown]
  - Pain in extremity [Unknown]
  - Oral discomfort [Unknown]
  - Bronchitis [Recovered/Resolved]
  - Dizziness [Unknown]
  - Peripheral swelling [Recovering/Resolving]
  - Dry mouth [Unknown]
  - Nausea [Unknown]
  - Drug prescribing error [Unknown]
  - Tongue discolouration [None]
  - Blood cholesterol increased [None]
  - Decreased appetite [Unknown]
  - Neoplasm [Unknown]
  - Diarrhoea [Unknown]
  - Dyspnoea [Unknown]
  - Urticaria [None]
  - Stomatitis [Unknown]
  - Tongue erythema [Unknown]
  - Chest discomfort [Recovered/Resolved]
  - Rash pruritic [Recovering/Resolving]
  - Asthenia [Unknown]
  - Arthropod bite [Unknown]
  - Glossitis [Unknown]
  - Condition aggravated [Unknown]
  - Nasopharyngitis [Recovered/Resolved]
  - Malaise [Not Recovered/Not Resolved]
  - Pain [Not Recovered/Not Resolved]
  - Pruritus generalised [Recovered/Resolved]
  - Oedema peripheral [Not Recovered/Not Resolved]
  - Chest pain [Recovered/Resolved]
  - Rhinalgia [None]
  - Dysuria [None]
  - Metastases to kidney [Unknown]
  - Metastases to liver [Unknown]
  - Oral pain [Unknown]
  - Headache [Recovered/Resolved]
  - Urticaria [Recovered/Resolved]
  - Vomiting [Recovered/Resolved]
  - Glossitis [None]
  - Incorrect dose administered [None]
  - Wrong technique in product usage process [None]

NARRATIVE: CASE EVENT DATE: 201711
